FAERS Safety Report 4358223-6 (Version None)
Quarter: 2004Q2

REPORT INFORMATION
  Report Type: 
  Country: None (occurrence: None)
  Receive Date: 20040514
  Receipt Date: 20040504
  Transmission Date: 20050107
  Serious: Yes (Hospitalization, Disabling, Other)
  Sender: FDA-Public Use
  Company Number: PHFR2004GB02010

PATIENT
  Age: 59 Year
  Sex: Male

DRUGS (6)
  1. CARBAMAZEPINE [Suspect]
     Indication: NEUROPATHIC PAIN
     Route: 048
     Dates: start: 20000101, end: 20020101
  2. CARBAMAZEPINE [Suspect]
     Route: 048
     Dates: end: 20031001
  3. CARBAMAZEPINE [Suspect]
     Dates: end: 20030501
  4. SIMVASTATIN [Concomitant]
     Dosage: 20MG/DAY
     Route: 065
  5. RAMIPRIL [Concomitant]
     Dosage: 10MG/DAY
     Route: 065
  6. ASPIRIN [Concomitant]
     Dosage: 75MG/DAY
     Route: 065

REACTIONS (2)
  - DRUG WITHDRAWAL SYNDROME [None]
  - HYPOMANIA [None]
